FAERS Safety Report 22975490 (Version 7)
Quarter: 2024Q1

REPORT INFORMATION
  Report Type: Report from Study
  Country: ES (occurrence: ES)
  Receive Date: 20230924
  Receipt Date: 20240315
  Transmission Date: 20240409
  Serious: Yes (Hospitalization, Other)
  Sender: FDA-Public Use
  Company Number: ES-ABBVIE-5329204

PATIENT
  Sex: Male

DRUGS (3)
  1. CARBIDOPA\LEVODOPA [Suspect]
     Active Substance: CARBIDOPA\LEVODOPA
     Indication: Parkinson^s disease
     Route: 050
     Dates: start: 20210708
  2. CARBIDOPA\LEVODOPA [Suspect]
     Active Substance: CARBIDOPA\LEVODOPA
     Route: 050
     Dates: start: 202307
  3. CARBIDOPA\LEVODOPA [Suspect]
     Active Substance: CARBIDOPA\LEVODOPA
     Dosage: FREQUENCY: DECREASES CONTINUES DOSE TO 3.3 ML
     Route: 050

REACTIONS (31)
  - Syncope [Not Recovered/Not Resolved]
  - Hospitalisation [Unknown]
  - Feeling abnormal [Not Recovered/Not Resolved]
  - Dyskinesia [Recovering/Resolving]
  - Unevaluable event [Not Recovered/Not Resolved]
  - Disorientation [Unknown]
  - Disease progression [Unknown]
  - Dysphagia [Unknown]
  - Eyelid ptosis [Not Recovered/Not Resolved]
  - Cerebrovascular accident [Unknown]
  - Fall [Not Recovered/Not Resolved]
  - Anaemia [Recovering/Resolving]
  - Mobility decreased [Not Recovered/Not Resolved]
  - Restlessness [Unknown]
  - Anal incontinence [Not Recovered/Not Resolved]
  - Anxiety [Unknown]
  - Condition aggravated [Not Recovered/Not Resolved]
  - Therapeutic product effect incomplete [Unknown]
  - Blood pressure decreased [Recovered/Resolved]
  - Nervousness [Unknown]
  - Laziness [Not Recovered/Not Resolved]
  - Hallucination [Not Recovered/Not Resolved]
  - Unevaluable event [Not Recovered/Not Resolved]
  - Asthenia [Not Recovered/Not Resolved]
  - Unevaluable event [Unknown]
  - Dysphemia [Not Recovered/Not Resolved]
  - Bacterial test positive [Unknown]
  - Gait disturbance [Not Recovered/Not Resolved]
  - Pallor [Not Recovered/Not Resolved]
  - Blood pressure decreased [Not Recovered/Not Resolved]
  - Orthostatic hypotension [Unknown]

NARRATIVE: CASE EVENT DATE: 20230101
